FAERS Safety Report 12893983 (Version 3)
Quarter: 2016Q4

REPORT INFORMATION
  Report Type: Report from Study
  Country: None (occurrence: CR)
  Receive Date: 20161028
  Receipt Date: 20161101
  Transmission Date: 20170207
  Serious: Yes (Life-Threatening, Hospitalization, Other)
  Sender: FDA-Public Use
  Company Number: CR-ABBVIE-16K-039-1764624-00

PATIENT
  Age: 31 Year
  Sex: Male

DRUGS (4)
  1. PREDNISONE. [Concomitant]
     Active Substance: PREDNISONE
     Indication: INFLAMMATORY BOWEL DISEASE
     Route: 048
  2. PENTASA [Concomitant]
     Active Substance: MESALAMINE
     Indication: INFLAMMATORY BOWEL DISEASE
     Route: 048
  3. HUMIRA [Suspect]
     Active Substance: ADALIMUMAB
     Indication: CROHN^S DISEASE
     Route: 058
     Dates: start: 20100716
  4. PREDNISONE. [Concomitant]
     Active Substance: PREDNISONE
     Route: 048

REACTIONS (12)
  - Nausea [Unknown]
  - Gastric ulcer perforation [Recovering/Resolving]
  - Haematochezia [Unknown]
  - Haematemesis [Unknown]
  - Haemoglobin decreased [Unknown]
  - Gastric ulcer perforation [Unknown]
  - Faeces discoloured [Unknown]
  - Vomiting [Unknown]
  - Gastric ulcer [Unknown]
  - General physical health deterioration [Unknown]
  - Gastric ulcer haemorrhage [Unknown]
  - Dizziness [Unknown]

NARRATIVE: CASE EVENT DATE: 20160114
